FAERS Safety Report 4477157-X (Version None)
Quarter: 2004Q4

REPORT INFORMATION
  Report Type: 
  Country: None (occurrence: None)
  Receive Date: 20041013
  Receipt Date: 20041008
  Transmission Date: 20050328
  Serious: Yes (Hospitalization)
  Sender: FDA-Public Use
  Company Number: 2004-120198-NL

PATIENT
  Age: 27 Year
  Sex: Male

DRUGS (5)
  1. SUSTANON [Suspect]
     Dosage: MG INTRAMUSCULAR
     Route: 030
  2. NANDROLONE DECANOATE [Suspect]
  3. METANDIENONE [Suspect]
  4. MIRTAZAPINE [Concomitant]
  5. CITALOPRAM [Concomitant]

REACTIONS (1)
  - ACUTE MYOCARDIAL INFARCTION [None]
